FAERS Safety Report 23417734 (Version 3)
Quarter: 2024Q2

REPORT INFORMATION
  Report Type: Spontaneous
  Country: US (occurrence: US)
  Receive Date: 20240118
  Receipt Date: 20240603
  Transmission Date: 20240716
  Serious: Yes (Hospitalization)
  Sender: FDA-Public Use
  Company Number: US-SK LIFE SCIENCE, INC-SKPVG-2023-001284

PATIENT

DRUGS (15)
  1. XCOPRI [Suspect]
     Active Substance: CENOBAMATE
     Indication: Seizure
     Dosage: UNK
     Route: 048
     Dates: start: 20230421
  2. XCOPRI [Suspect]
     Active Substance: CENOBAMATE
     Indication: Epilepsy
     Dosage: 50 MILLIGRAM, QD
     Route: 048
  3. XCOPRI [Suspect]
     Active Substance: CENOBAMATE
     Dosage: INCREASED TO TWO 50MG TABLETS FOR 100MG TOTAL DAILY DOSE
     Route: 048
  4. XCOPRI [Suspect]
     Active Substance: CENOBAMATE
     Dosage: 100 MILLIGRAM, QD ( ONCE DAILY IN THE EVENING)
     Route: 048
     Dates: start: 20231220, end: 20240226
  5. XCOPRI [Suspect]
     Active Substance: CENOBAMATE
     Dosage: 150 MILLIGRAM (AT NIGHT)
     Route: 048
     Dates: start: 20240227
  6. XCOPRI [Suspect]
     Active Substance: CENOBAMATE
     Dosage: 150 MILLIGRAM, QD (ONE TIME AT NIGHT)
     Route: 048
     Dates: start: 20240301
  7. XCOPRI [Suspect]
     Active Substance: CENOBAMATE
     Dosage: 200MG EVERY NIGHT AT BEDTIME
     Route: 048
     Dates: start: 202404
  8. KEPPRA [Concomitant]
     Active Substance: LEVETIRACETAM
     Indication: Product used for unknown indication
     Dosage: 2000 MILLIGRAM
     Route: 065
     Dates: end: 202310
  9. KEPPRA [Concomitant]
     Active Substance: LEVETIRACETAM
     Dosage: 1200 MILLIGRAM
     Route: 065
     Dates: end: 202310
  10. KEPPRA [Concomitant]
     Active Substance: LEVETIRACETAM
     Dosage: 1000 MILLIGRAM
     Route: 065
     Dates: start: 202310, end: 202404
  11. KEPPRA [Concomitant]
     Active Substance: LEVETIRACETAM
     Dosage: 1000 MILLIGRAM
     Route: 065
     Dates: start: 202404
  12. LAMICTAL [Concomitant]
     Active Substance: LAMOTRIGINE
     Indication: Product used for unknown indication
     Dosage: 200 MILLIGRAM
     Route: 065
  13. LAMICTAL [Concomitant]
     Active Substance: LAMOTRIGINE
     Dosage: 100 MILLIGRAM
     Route: 065
     Dates: end: 202404
  14. LAMICTAL [Concomitant]
     Active Substance: LAMOTRIGINE
     Dosage: 25 MILLIGRAM
     Route: 065
     Dates: start: 202404, end: 202404
  15. LAMICTAL [Concomitant]
     Active Substance: LAMOTRIGINE
     Dosage: 200 MILLIGRAM
     Route: 065
     Dates: start: 202404

REACTIONS (21)
  - Hospitalisation [Recovered/Resolved]
  - Seizure [Recovered/Resolved]
  - Seizure [Not Recovered/Not Resolved]
  - Seizure [Unknown]
  - Seizure [Unknown]
  - Seizure cluster [Unknown]
  - Seizure cluster [Unknown]
  - Feeling abnormal [Unknown]
  - Limb discomfort [Unknown]
  - Hypokinesia [Unknown]
  - Seizure [Recovered/Resolved]
  - Dysstasia [Unknown]
  - Thirst [Unknown]
  - Seizure [Not Recovered/Not Resolved]
  - Migraine [Unknown]
  - Nausea [Unknown]
  - Somnolence [Unknown]
  - Dizziness [Unknown]
  - Balance disorder [Not Recovered/Not Resolved]
  - Fatigue [Not Recovered/Not Resolved]
  - Confusional state [Unknown]

NARRATIVE: CASE EVENT DATE: 20240106
